FAERS Safety Report 7199956-6 (Version None)
Quarter: 2010Q4

REPORT INFORMATION
  Report Type: 
  Country: None (occurrence: None)
  Receive Date: 20101214
  Receipt Date: 20101129
  Transmission Date: 20110411
  Serious: Yes (Other)
  Sender: FDA-Public Use
  Company Number: 1000017640

PATIENT
  Age: 42 Year
  Sex: Female

DRUGS (4)
  1. CITALOPRAM HYDROBROMIDE [Suspect]
     Dosage: 40 MG (40 MG,1 IN 1 D)
  2. ZOPICLONE (ZOPICLONE) (TABLETS) [Suspect]
     Dosage: (26 DOSAGE FORMS,ONCE),ORAL
     Route: 048
  3. LORAZEPAM [Concomitant]
  4. CHLORAL HYDRATE (CHLORAL HYDRATE) (CHLORAL HYDRATE) [Concomitant]

REACTIONS (7)
  - ANXIETY [None]
  - DISTURBANCE IN ATTENTION [None]
  - FEELING GUILTY [None]
  - INTENTIONAL OVERDOSE [None]
  - MEMORY IMPAIRMENT [None]
  - PSYCHOTIC DISORDER [None]
  - SUICIDE ATTEMPT [None]
